FAERS Safety Report 9228497 (Version 1)
Quarter: 2013Q1

REPORT INFORMATION
  Report Type: Spontaneous
  Country: US (occurrence: None)
  Receive Date: 20121016
  Receipt Date: 20121016
  Transmission Date: 20140127
  Serious: Yes (Hospitalization)
  Sender: FDA-Public Use
  Company Number: GAM-060-12-US

PATIENT
  Age: 72 Year
  Sex: Female

DRUGS (7)
  1. OCTAGAM [Suspect]
     Indication: MYASTHENIA GRAVIS
     Route: 042
     Dates: start: 20100805, end: 20100805
  2. METHYLPREDNISOLONE [Concomitant]
  3. LISINOPRIL [Concomitant]
  4. AMLODIPINE [Concomitant]
  5. LEVALBUTEROL [Concomitant]
  6. BUDESONIDE [Concomitant]
  7. MOMETASONE [Concomitant]

REACTIONS (2)
  - Ischaemic stroke [None]
  - Drug administration error [None]
